FAERS Safety Report 6191052-X (Version None)
Quarter: 2009Q2

REPORT INFORMATION
  Report Type: 
  Country: None (occurrence: None)
  Receive Date: 20090513
  Receipt Date: 20090505
  Transmission Date: 20091009
  Serious: Yes (Hospitalization)
  Sender: FDA-Public Use
  Company Number: 2009004683

PATIENT
  Sex: Male

DRUGS (1)
  1. PROVIGIL [Suspect]
     Dosage: 400 MG (200 MG,2 IN 1 D),ORAL
     Route: 048

REACTIONS (3)
  - CARDIAC FAILURE [None]
  - DYSPNOEA [None]
  - TACHYCARDIA [None]
